FAERS Safety Report 4297180-8 (Version None)
Quarter: 2004Q1

REPORT INFORMATION
  Report Type: 
  Country: None (occurrence: None)
  Receive Date: 20040213
  Receipt Date: 20040203
  Transmission Date: 20041129
  Serious: Yes (Hospitalization)
  Sender: FDA-Public Use
  Company Number: US-JNJFOC-20040200922

PATIENT
  Age: 78 Year
  Sex: Male

DRUGS (3)
  1. DURAGESIC [Suspect]
     Indication: PAIN
     Dosage: 25 UG/HR, 1 IN 72 HOUR, TRANSDERMAL
     Route: 062
     Dates: start: 20031226
  2. FLOMAX (TAMSULOXIN HYDROCHLORIDE) [Concomitant]
  3. ZOLOFT [Concomitant]

REACTIONS (2)
  - DYSPNOEA EXERTIONAL [None]
  - INTESTINAL OBSTRUCTION [None]
